FAERS Safety Report 5775118-1 (Version None)
Quarter: 2008Q2

REPORT INFORMATION
  Report Type: 
  Country: None (occurrence: None)
  Receive Date: 20080617
  Receipt Date: 20080613
  Transmission Date: 20081010
  Serious: Yes (Death, Hospitalization, Other)
  Sender: FDA-Public Use
  Company Number: GB-ABBOTT-08P-167-0457197-00

PATIENT
  Age: 66 Year
  Sex: Female
  Weight: 109 kg

DRUGS (1)
  1. HUMIRA [Suspect]
     Indication: RHEUMATOID ARTHRITIS
     Dates: start: 20070709

REACTIONS (7)
  - DISSEMINATED TUBERCULOSIS [None]
  - HEPATIC STEATOSIS [None]
  - LIVER FUNCTION TEST ABNORMAL [None]
  - MALAISE [None]
  - PANCYTOPENIA [None]
  - PULMONARY HAEMORRHAGE [None]
  - SEPTIC SHOCK [None]
